FAERS Safety Report 14935250 (Version 2)
Quarter: 2020Q4

REPORT INFORMATION
  Report Type: Spontaneous
  Country: US (occurrence: US)
  Receive Date: 20180524
  Receipt Date: 20201217
  Transmission Date: 20210113
  Serious: Yes (Disabling, Other)
  Sender: FDA-Public Use
  Company Number: US-TEVA-2018-US-895061

PATIENT
  Age: 65 Year
  Sex: Female

DRUGS (24)
  1. HERCEPTIN [Suspect]
     Active Substance: TRASTUZUMAB
     Indication: BREAST CANCER FEMALE
     Route: 065
  2. FERROUS SULFATE. [Concomitant]
     Active Substance: FERROUS SULFATE
     Dates: start: 2015
  3. PROMETHAZINE [Concomitant]
     Active Substance: PROMETHAZINE HYDROCHLORIDE
     Dates: start: 2015
  4. BUSPIRONE [Concomitant]
     Active Substance: BUSPIRONE HYDROCHLORIDE
     Dates: start: 2015
  5. HYDROCODONE [Concomitant]
     Active Substance: HYDROCODONE
     Dates: start: 2015, end: 2015
  6. DOCETAXEL SAGENT [Suspect]
     Active Substance: DOCETAXEL
     Indication: BREAST CANCER FEMALE
     Dosage: DOSAGE: 75MG, NUMBER OF CYCLES: 06, FREQUENCY: EVERY THREE WEEKS
     Route: 065
     Dates: start: 20150330, end: 20151007
  7. DOCETAXEL HOSPIRA [Suspect]
     Active Substance: DOCETAXEL
     Indication: BREAST CANCER FEMALE
     Dosage: DOSAGE: 75MG, NUMBER OF CYCLES: 06, FREQUENCY: EVERY THREE WEEKS
     Route: 065
     Dates: start: 20150330, end: 20151007
  8. IRON [Concomitant]
     Active Substance: IRON
     Dates: start: 2015
  9. ACETAMINOPHEN. [Concomitant]
     Active Substance: ACETAMINOPHEN
  10. CARBOPLATIN. [Suspect]
     Active Substance: CARBOPLATIN
     Indication: BREAST CANCER FEMALE
     Route: 065
  11. ULTRAM [Concomitant]
     Active Substance: TRAMADOL HYDROCHLORIDE
     Dates: start: 2015
  12. PROTONIX [Concomitant]
     Active Substance: PANTOPRAZOLE SODIUM
     Dates: start: 2015, end: 2016
  13. LYRICA [Concomitant]
     Active Substance: PREGABALIN
     Dates: start: 2015
  14. INSULIN [Concomitant]
     Active Substance: INSULIN NOS
     Route: 058
     Dates: start: 2013
  15. LIDOCAINE HCL [Concomitant]
     Active Substance: LIDOCAINE HYDROCHLORIDE
     Route: 061
     Dates: start: 201505, end: 201512
  16. COUMADIN [Concomitant]
     Active Substance: WARFARIN SODIUM
     Dates: start: 20150505, end: 20150505
  17. CLARITIN [Concomitant]
     Active Substance: LORATADINE
  18. FLONASE [Concomitant]
     Active Substance: FLUTICASONE PROPIONATE
     Dosage: 50 MCG/ACTUATION NASAL SPRAY, SUSPENSION
     Route: 045
     Dates: start: 2015
  19. HYZAAR [Concomitant]
     Active Substance: HYDROCHLOROTHIAZIDE\LOSARTAN POTASSIUM
     Dosage: HYZAAR 50 MG-12.5 MG TABLET
     Dates: start: 201505
  20. LANTUS SOLOSTAR [Concomitant]
     Active Substance: INSULIN GLARGINE
     Dosage: 100 UNIT/ML (3 ML)
     Dates: start: 2015
  21. VENTOLIN HFA [Concomitant]
     Active Substance: ALBUTEROL SULFATE
     Dosage: 90 MCG/ACTUATION AEROSOL INHALER
  22. LIPITOR [Concomitant]
     Active Substance: ATORVASTATIN CALCIUM
     Dates: start: 2015
  23. DOCETAXEL SANDOZ [Suspect]
     Active Substance: DOCETAXEL
     Indication: BREAST CANCER FEMALE
     Dosage: DOSAGE: 75MG, NUMBER OF CYCLES: 06, FREQUENCY: EVERY THREE WEEKS
     Route: 065
     Dates: start: 20150330, end: 20151007
  24. ROBAXIN [Concomitant]
     Active Substance: METHOCARBAMOL
     Dates: start: 201505

REACTIONS (19)
  - Alopecia areata [Not Recovered/Not Resolved]
  - Arthralgia [Unknown]
  - Nausea [Recovered/Resolved]
  - Neuropathy peripheral [Unknown]
  - Abdominal pain [Recovered/Resolved]
  - Insomnia [Unknown]
  - Dyspepsia [Unknown]
  - Madarosis [Not Recovered/Not Resolved]
  - Headache [Recovered/Resolved]
  - Lymphoedema [Unknown]
  - Cough [Recovered/Resolved]
  - Diarrhoea [Unknown]
  - Decreased appetite [Unknown]
  - Dizziness [Recovered/Resolved]
  - Pulmonary embolism [Unknown]
  - Fatigue [Unknown]
  - Upper respiratory tract infection [Unknown]
  - Hot flush [Unknown]
  - Oedema peripheral [Unknown]

NARRATIVE: CASE EVENT DATE: 2015
